FAERS Safety Report 5264317-3 (Version None)
Quarter: 2007Q1

REPORT INFORMATION
  Report Type: 
  Country: None (occurrence: None)
  Receive Date: 20061213
  Receipt Date: 20050201
  Transmission Date: 20070707
  Serious: Yes (Other)
  Sender: FDA-Public Use
  Company Number: 2005UW01772

PATIENT
  Age: 62 Year
  Sex: Female
  Weight: 63.502 kg

DRUGS (3)
  1. IRESSA [Suspect]
     Indication: NON-SMALL CELL LUNG CANCER
     Dates: start: 20030101
  2. ANTIHYPERTENSIVES [Concomitant]
  3. ALTERNATIVE MEDICATIONS [Concomitant]

REACTIONS (2)
  - INSOMNIA [None]
  - RASH [None]
